FAERS Safety Report 16635172 (Version 2)
Quarter: 2019Q3

REPORT INFORMATION
  Report Type: Spontaneous
  Country: JP (occurrence: JP)
  Receive Date: 20190726
  Receipt Date: 20190912
  Transmission Date: 20191004
  Serious: Yes (Other)
  Sender: FDA-Public Use
  Company Number: PHJP2019JP009472

PATIENT
  Age: 67 Year
  Sex: Male

DRUGS (2)
  1. EQUMET [Suspect]
     Active Substance: METFORMIN HYDROCHLORIDE\VILDAGLIPTIN
     Indication: DIABETES MELLITUS
     Dosage: METFORMIN:UNK/VILDAGLIPTIN: 50MG
     Route: 048
  2. BACAMPICILLIN [Suspect]
     Active Substance: BACAMPICILLIN
     Indication: PRODUCT USED FOR UNKNOWN INDICATION
     Dosage: UNK
     Route: 048

REACTIONS (5)
  - Erythema [Recovering/Resolving]
  - Toxic epidermal necrolysis [Recovered/Resolved]
  - Skin erosion [Recovering/Resolving]
  - Bacteraemia [Recovering/Resolving]
  - Rash [Recovering/Resolving]
